FAERS Safety Report 4511967-5 (Version None)
Quarter: 2004Q4

REPORT INFORMATION
  Report Type: 
  Country: None (occurrence: None)
  Receive Date: 20041129
  Receipt Date: 20031010
  Transmission Date: 20050328
  Serious: Yes (Hospitalization)
  Sender: FDA-Public Use
  Company Number: US-BRISTOL-MYERS SQUIBB COMPANY-12409124

PATIENT
  Sex: Female

DRUGS (1)
  1. SUSTIVA [Suspect]

REACTIONS (1)
  - STEVENS-JOHNSON SYNDROME [None]
